FAERS Safety Report 10362079 (Version 3)
Quarter: 2014Q3

REPORT INFORMATION
  Report Type: Spontaneous
  Country: US (occurrence: US)
  Receive Date: 20140805
  Receipt Date: 20140926
  Transmission Date: 20150326
  Serious: Yes (Hospitalization)
  Sender: FDA-Public Use
  Company Number: US-UNITED THERAPEUTICS-UNT-2014-004869

PATIENT
  Sex: Female
  Weight: 79.37 kg

DRUGS (2)
  1. REMODULIN [Suspect]
     Active Substance: TREPROSTINIL
     Indication: PULMONARY ARTERIAL HYPERTENSION
     Dosage: 0.041 ?G/KG, CONTINUING
     Route: 041
     Dates: start: 20120303
  2. REMODULIN [Suspect]
     Active Substance: TREPROSTINIL
     Dosage: 0.041 ?G/KG, CONTINUING
     Route: 041

REACTIONS (6)
  - Fall [Unknown]
  - Diarrhoea [Unknown]
  - Pelvic fracture [Unknown]
  - Ulna fracture [Unknown]
  - Upper limb fracture [Unknown]
  - Device related infection [Unknown]

NARRATIVE: CASE EVENT DATE: 2014
